FAERS Safety Report 7091255-6 (Version None)
Quarter: 2010Q4

REPORT INFORMATION
  Report Type: 
  Country: None (occurrence: None)
  Receive Date: 20101109
  Receipt Date: 20101103
  Transmission Date: 20110411
  Serious: Yes (Hospitalization, Other)
  Sender: FDA-Public Use
  Company Number: BR-SANOFI-AVENTIS-2010SA067372

PATIENT
  Age: 79 Year
  Sex: Female
  Weight: 45 kg

DRUGS (2)
  1. LANTUS [Suspect]
     Route: 058
     Dates: start: 20101002
  2. APIDRA [Suspect]
     Route: 058

REACTIONS (7)
  - CEREBROVASCULAR ACCIDENT [None]
  - COLD SWEAT [None]
  - HYPOGLYCAEMIA [None]
  - PNEUMONIA [None]
  - POLLAKIURIA [None]
  - THIRST [None]
  - URINARY TRACT INFECTION [None]
